FAERS Safety Report 19811523 (Version 9)
Quarter: 2021Q4

REPORT INFORMATION
  Report Type: Report from Study
  Country: CA (occurrence: None)
  Receive Date: 20210909
  Receipt Date: 20211228
  Transmission Date: 20220303
  Serious: Yes (Hospitalization)
  Sender: FDA-Public Use
  Company Number: CA-EISAI MEDICAL RESEARCH-EC-2021-099159

PATIENT
  Age: 55 Year
  Sex: Male
  Weight: 94.4 kg

DRUGS (18)
  1. LENVATINIB [Suspect]
     Active Substance: LENVATINIB
     Indication: Pancreatic carcinoma
     Route: 048
     Dates: start: 20210720, end: 20210831
  2. PEMBROLIZUMAB [Suspect]
     Active Substance: PEMBROLIZUMAB
     Indication: Pancreatic carcinoma
     Route: 041
     Dates: start: 20210720, end: 20210720
  3. PEMBROLIZUMAB [Suspect]
     Active Substance: PEMBROLIZUMAB
     Route: 041
     Dates: start: 20210810, end: 20210810
  4. CANDESARTAN [Concomitant]
     Active Substance: CANDESARTAN
     Dates: start: 200901
  5. AMLODIPINE [Concomitant]
     Active Substance: AMLODIPINE BESYLATE
     Dates: start: 200901
  6. CREON [Concomitant]
     Active Substance: PANCRELIPASE AMYLASE\PANCRELIPASE LIPASE\PANCRELIPASE PROTEASE
     Dates: start: 201901
  7. LORAZEPAM [Concomitant]
     Active Substance: LORAZEPAM
     Dates: start: 201901
  8. CITALOPRAM [Concomitant]
     Active Substance: CITALOPRAM HYDROBROMIDE
     Dates: start: 201901
  9. SLOW-K [Concomitant]
     Active Substance: POTASSIUM CHLORIDE
     Dates: start: 202001
  10. TOZINAMERAN [Concomitant]
     Active Substance: TOZINAMERAN
     Dates: start: 20210318
  11. HYDROMORPHONE [Concomitant]
     Active Substance: HYDROMORPHONE
     Dates: start: 20210420
  12. HYDROMORPHONE [Concomitant]
     Active Substance: HYDROMORPHONE
     Dates: start: 20210901, end: 20210901
  13. ACETAMINOPHEN [Concomitant]
     Active Substance: ACETAMINOPHEN
     Dates: start: 20210525
  14. MAGNESIUM OXIDE [Concomitant]
     Active Substance: MAGNESIUM OXIDE
     Dates: start: 20210614
  15. HYDROMORPHONE [Concomitant]
     Active Substance: HYDROMORPHONE
     Dates: start: 20210630
  16. FUROSEMIDE [Concomitant]
     Active Substance: FUROSEMIDE
     Dates: start: 20210822, end: 20210828
  17. OLANZAPINE [Concomitant]
     Active Substance: OLANZAPINE
     Dates: start: 20210831
  18. OLANZAPINE [Concomitant]
     Active Substance: OLANZAPINE
     Dates: start: 20210826, end: 20210922

REACTIONS (1)
  - Large intestine perforation [Recovered/Resolved]

NARRATIVE: CASE EVENT DATE: 20210901
